FAERS Safety Report 4494832-1 (Version None)
Quarter: 2004Q4

REPORT INFORMATION
  Report Type: 
  Country: None (occurrence: None)
  Receive Date: 20041103
  Receipt Date: 20041019
  Transmission Date: 20050328
  Serious: Yes (Death, Life-Threatening, Hospitalization)
  Sender: FDA-Public Use
  Company Number: 2004-00318

PATIENT
  Age: 58 Year
  Sex: Female

DRUGS (14)
  1. VELCADE [Suspect]
     Indication: MULTIPLE MYELOMA
     Dosage: 1.30 MG/M2; SEE IMAGE
     Dates: start: 20040607, end: 20040617
  2. VELCADE [Suspect]
     Indication: MULTIPLE MYELOMA
     Dosage: 1.30 MG/M2; SEE IMAGE
     Dates: start: 20040705, end: 20040715
  3. LEVOMEPROMAZINE [Concomitant]
  4. DIGOXIN [Concomitant]
  5. FUROSEMIDE [Concomitant]
  6. METOCLOPRAMIDE [Concomitant]
  7. LACTULOSE [Concomitant]
  8. LEVOTHYROXINE SODIUM [Concomitant]
  9. PREDSOL (PREDNISOLONE SODIUM PHOSPHATE) [Concomitant]
  10. ACETAMINOPHEN [Concomitant]
  11. CODEINE [Concomitant]
  12. OXAZEPAM [Concomitant]
  13. ESOMEPRAZOLE [Concomitant]
  14. VALACYCLOVIR HCL [Concomitant]

REACTIONS (8)
  - AMMONIA INCREASED [None]
  - AMYLOIDOSIS [None]
  - COMA HEPATIC [None]
  - CONFUSIONAL STATE [None]
  - DISEASE PROGRESSION [None]
  - HEPATIC FAILURE [None]
  - PROTEIN TOTAL INCREASED [None]
  - THROMBOCYTOPENIA [None]
